FAERS Safety Report 9468391 (Version 1)
Quarter: 2013Q3

REPORT INFORMATION
  Report Type: Spontaneous
  Country: DK (occurrence: DK)
  Receive Date: 20130821
  Receipt Date: 20130821
  Transmission Date: 20140515
  Serious: Yes (Death)
  Sender: FDA-Public Use
  Company Number: PHHY2013DK089190

PATIENT
  Age: 68 Year
  Sex: Male

DRUGS (11)
  1. PREDNISONE [Suspect]
     Dosage: 40-100 MG DAILY
  2. CLOBETASOL PROPIONATE [Suspect]
  3. CICLOSPORIN [Suspect]
  4. CHLORAMBUCIL [Suspect]
  5. POTASSIUM PERMANGANATE [Suspect]
  6. IMMUNOGLOBULINS [Concomitant]
     Dosage: 1 G/KG, QD
  7. IMMUNOGLOBULINS [Concomitant]
     Dosage: 1 G/KG, QD;  (ONCE A MONTH)
  8. ALEMTUZUMAB [Concomitant]
  9. TRIMETHOPRIM SULFAMETHOXAZOLE [Concomitant]
  10. ACICLOVIR [Concomitant]
  11. FLUCONAZOLE [Concomitant]

REACTIONS (3)
  - Chronic lymphocytic leukaemia [Fatal]
  - General physical health deterioration [Fatal]
  - Drug ineffective [Unknown]
